FAERS Safety Report 6110584-3 (Version None)
Quarter: 2009Q1

REPORT INFORMATION
  Report Type: 
  Country: None (occurrence: None)
  Receive Date: 20090310
  Receipt Date: 20090303
  Transmission Date: 20090719
  Serious: Yes (Death, Hospitalization)
  Sender: FDA-Public Use
  Company Number: US-GILEAD-2009-0020389

PATIENT
  Sex: Female

DRUGS (9)
  1. LETAIRIS [Suspect]
     Indication: PULMONARY ARTERIAL HYPERTENSION
     Dates: start: 20090122
  2. PROTONIX [Concomitant]
     Indication: GASTROOESOPHAGEAL REFLUX DISEASE
  3. CLARINEX [Concomitant]
     Indication: HYPERSENSITIVITY
  4. VERAPAMIL [Concomitant]
     Indication: TACHYCARDIA
  5. LOVENOX [Concomitant]
     Indication: PROPHYLAXIS
  6. CEFTRIAXONE [Concomitant]
     Indication: INFECTION
  7. VANCOMYCIN [Concomitant]
     Indication: INFECTION
  8. DIPRIVAN [Concomitant]
     Indication: SEDATION
  9. SILDENAFIL CITRATE [Concomitant]
     Indication: PULMONARY ARTERIAL HYPERTENSION
     Dates: start: 20090127

REACTIONS (3)
  - OEDEMA PERIPHERAL [None]
  - PNEUMONIA [None]
  - RESPIRATORY FAILURE [None]
